FAERS Safety Report 7210328-8 (Version None)
Quarter: 2011Q1

REPORT INFORMATION
  Report Type: 
  Country: None (occurrence: None)
  Receive Date: 20110105
  Receipt Date: 20101227
  Transmission Date: 20110831
  Serious: Yes (Life-Threatening, Other)
  Sender: FDA-Public Use
  Company Number: DE-BAXTER-2010BH028834

PATIENT
  Age: 69 Year
  Sex: Female
  Weight: 55 kg

DRUGS (1)
  1. GAMMAGARD LIQUID [Suspect]
     Indication: PRODUCT USED FOR UNKNOWN INDICATION
     Route: 042
     Dates: start: 20101115, end: 20101115

REACTIONS (7)
  - DYSPNOEA [None]
  - CHILLS [None]
  - VOMITING [None]
  - ANAPHYLACTIC REACTION [None]
  - DIARRHOEA [None]
  - HYPOTENSION [None]
  - ANGIOEDEMA [None]
